FAERS Safety Report 5887849-3 (Version None)
Quarter: 2008Q3

REPORT INFORMATION
  Report Type: 
  Country: None (occurrence: None)
  Receive Date: 20080917
  Receipt Date: 20080917
  Transmission Date: 20090109
  Serious: Yes (Life-Threatening, Hospitalization)
  Sender: FDA-Public Use
  Company Number: None

PATIENT
  Age: 54 Year

DRUGS (2)
  1. NAPROXEN [Suspect]
     Indication: PAIN
     Dosage: 750 MG BID PO
     Route: 048
     Dates: start: 20080711, end: 20080721
  2. IBUPROFEN [Suspect]
     Dosage: PRN PO
     Route: 048
     Dates: start: 20080721, end: 20080831

REACTIONS (11)
  - ABDOMINAL PAIN UPPER [None]
  - ANAEMIA [None]
  - BLOOD PRESSURE DECREASED [None]
  - DIZZINESS [None]
  - GASTRITIS [None]
  - GASTROINTESTINAL HAEMORRHAGE [None]
  - HAEMATEMESIS [None]
  - HAEMODYNAMIC INSTABILITY [None]
  - HEART RATE INCREASED [None]
  - MELAENA [None]
  - THROMBOCYTOPENIA [None]
